FAERS Safety Report 17148685 (Version 2)
Quarter: 2020Q1

REPORT INFORMATION
  Report Type: Spontaneous
  Country: DE (occurrence: DE)
  Receive Date: 20191213
  Receipt Date: 20200228
  Transmission Date: 20200409
  Serious: Yes (Hospitalization, Other)
  Sender: FDA-Public Use
  Company Number: DE-ROCHE-2490836

PATIENT
  Age: 60 Year
  Sex: Female

DRUGS (5)
  1. FAMPYRA [Concomitant]
     Active Substance: DALFAMPRIDINE
     Indication: MULTIPLE SCLEROSIS
     Route: 048
     Dates: start: 20180509
  2. TILIDIN [Concomitant]
     Active Substance: NALOXONE HYDROCHLORIDE\TILIDINE HYDROCHLORIDE
     Indication: PAIN
     Dosage: 50/4 1-0-1
     Route: 048
     Dates: start: 2015
  3. OCREVUS [Suspect]
     Active Substance: OCRELIZUMAB
     Indication: RELAPSING MULTIPLE SCLEROSIS
     Route: 042
     Dates: start: 20180507
  4. TRIMIPRAMINE [Concomitant]
     Active Substance: TRIMIPRAMINE
     Route: 048
     Dates: start: 2015
  5. XEOMIN [Concomitant]
     Active Substance: INCOBOTULINUMTOXINA
     Indication: TORTICOLLIS
     Route: 030
     Dates: start: 20140203

REACTIONS (7)
  - Lymphocyte count decreased [Unknown]
  - Blood immunoglobulin A decreased [Not Recovered/Not Resolved]
  - Blood immunoglobulin M decreased [Not Recovered/Not Resolved]
  - Blood immunoglobulin G decreased [Not Recovered/Not Resolved]
  - Basophil count increased [Recovered/Resolved]
  - Rheumatoid arthritis [Unknown]
  - White blood cell count decreased [Recovering/Resolving]

NARRATIVE: CASE EVENT DATE: 201908
